FAERS Safety Report 21756244 (Version 1)
Quarter: 2022Q4

REPORT INFORMATION
  Report Type: Spontaneous
  Country: US (occurrence: US)
  Receive Date: 20221220
  Receipt Date: 20221220
  Transmission Date: 20230113
  Serious: No
  Sender: FDA-Public Use
  Company Number: US-CARA THERAPEUTICS, INC.-2022-00104-US

PATIENT
  Age: 61 Year
  Sex: Female
  Weight: 88.5 kg

DRUGS (8)
  1. KORSUVA [Suspect]
     Active Substance: DIFELIKEFALIN ACETATE
     Indication: Pruritus
     Dosage: 0.9 ML, AT END OF HEMODIALYSIS, 3 TIMES PER WEEK
     Route: 042
     Dates: start: 20221005, end: 20221005
  2. KORSUVA [Suspect]
     Active Substance: DIFELIKEFALIN ACETATE
     Indication: End stage renal disease
     Dosage: 0.9 ML, AT END OF HEMODIALYSIS, 3 TIMES PER WEEK
     Route: 042
     Dates: start: 202210, end: 202210
  3. KORSUVA [Suspect]
     Active Substance: DIFELIKEFALIN ACETATE
     Dosage: 0.9 ML, AT END OF HEMODIALYSIS, 3 TIMES PER WEEK
     Route: 042
     Dates: start: 202210, end: 202210
  4. KORSUVA [Suspect]
     Active Substance: DIFELIKEFALIN ACETATE
     Dosage: 0.9 ML, AT END OF HEMODIALYSIS, 3 TIMES PER WEEK
     Route: 042
     Dates: start: 20221012, end: 20221012
  5. HECTOROL [Concomitant]
     Active Substance: DOXERCALCIFEROL
     Indication: Product used for unknown indication
     Dosage: 12 MCG, UNK
     Route: 040
  6. BENADRYL [Concomitant]
     Active Substance: DIPHENHYDRAMINE HYDROCHLORIDE
     Indication: Product used for unknown indication
     Dosage: 50 MG, UNK
     Route: 040
  7. CARVEDILOL [Concomitant]
     Active Substance: CARVEDILOL
     Indication: Blood pressure abnormal
     Dosage: 12.5 MG, TWICE A DAY
     Route: 065
  8. HYDROXYZINE [Concomitant]
     Active Substance: HYDROXYZINE HYDROCHLORIDE
     Indication: Pruritus
     Dosage: 25 MG, THREE TIMES PER DAY, AS NEEDED
     Route: 065

REACTIONS (1)
  - Injection site warmth [Recovering/Resolving]

NARRATIVE: CASE EVENT DATE: 20221005
